FAERS Safety Report 4322017-8 (Version None)
Quarter: 2004Q1

REPORT INFORMATION
  Report Type: 
  Country: None (occurrence: None)
  Receive Date: 20040319
  Receipt Date: 20031126
  Transmission Date: 20041129
  Serious: No
  Sender: FDA-Public Use
  Company Number: 200312228

PATIENT
  Age: 46 Year
  Sex: Male
  Weight: 81.6475 kg

DRUGS (3)
  1. LUMIGAN [Suspect]
     Indication: GLAUCOMA
     Dosage: 1 DROP QD EYE
     Dates: start: 20021113
  2. LUMIGAN [Suspect]
     Indication: GLAUCOMA
     Dosage: 2 DROP QD EYE
  3. TRUSOPT [Concomitant]

REACTIONS (3)
  - GROWTH OF EYELASHES [None]
  - HAIR COLOUR CHANGES [None]
  - HAIR GROWTH ABNORMAL [None]
